FAERS Safety Report 21546055 (Version 1)
Quarter: 2022Q4

REPORT INFORMATION
  Report Type: Report from Study
  Country: US (occurrence: US)
  Receive Date: 20221103
  Receipt Date: 20221103
  Transmission Date: 20230113
  Serious: Yes (Hospitalization)
  Sender: FDA-Public Use
  Company Number: US-002147023-NVSC2022US244222

PATIENT
  Sex: Female

DRUGS (1)
  1. TREPROSTINIL [Suspect]
     Active Substance: TREPROSTINIL
     Indication: Pulmonary arterial hypertension
     Dosage: 94 NG/KG/MIN, CONT
     Route: 058
     Dates: start: 20220802

REACTIONS (4)
  - Fall [Unknown]
  - Head injury [Unknown]
  - Dyspnoea [Unknown]
  - Blood pressure decreased [Unknown]
